FAERS Safety Report 20098586 (Version 1)
Quarter: 2021Q4

REPORT INFORMATION
  Report Type: Spontaneous
  Country: US (occurrence: US)
  Receive Date: 20211122
  Receipt Date: 20211122
  Transmission Date: 20220303
  Serious: Yes (Other)
  Sender: FDA-Public Use
  Company Number: US-PFIZER INC-202101565670

PATIENT
  Age: 66 Year
  Sex: Female
  Weight: 118 kg

DRUGS (3)
  1. COLESTIPOL HYDROCHLORIDE [Suspect]
     Active Substance: COLESTIPOL HYDROCHLORIDE
     Indication: Diarrhoea
     Dosage: UNK, 1X/DAY, (60 TABLET, 1 GM, 1-3 TABLETS AT BEDTIME ORALLY ONCE A DAY 30 DAYS)
     Route: 048
  2. OMEPRAZOLE [Concomitant]
     Active Substance: OMEPRAZOLE
     Dosage: 20 MG, DAILY
  3. CELEBREX [Concomitant]
     Active Substance: CELECOXIB
     Indication: Arthralgia
     Dosage: UNK, 1X/DAY

REACTIONS (17)
  - Diverticulitis [Unknown]
  - Oesophageal stenosis [Unknown]
  - Diarrhoea [Unknown]
  - Abdominal pain [Recovered/Resolved]
  - Haemorrhoids [Unknown]
  - Polyp [Unknown]
  - Regurgitation [Unknown]
  - Dysphagia [Recovered/Resolved]
  - Odynophagia [Unknown]
  - Hiatus hernia [Unknown]
  - Gastric polyps [Unknown]
  - Chest pain [Unknown]
  - Middle insomnia [Unknown]
  - Oesophageal spasm [Unknown]
  - Pain in jaw [Unknown]
  - Tachycardia [Unknown]
  - Off label use [Unknown]
